FAERS Safety Report 18585383 (Version 1)
Quarter: 2020Q4

REPORT INFORMATION
  Report Type: Spontaneous
  Country: FR (occurrence: FR)
  Receive Date: 20201207
  Receipt Date: 20201207
  Transmission Date: 20210114
  Serious: Yes (Life-Threatening)
  Sender: FDA-Public Use
  Company Number: FR-BTGSP-FR-BTGSP-20-1293

PATIENT

DRUGS (2)
  1. METHOTREXATE. [Concomitant]
     Active Substance: METHOTREXATE
     Indication: HAEMATOLOGICAL MALIGNANCY
     Dosage: HIGH-DOSE, HIGHER OR EQUAL TO 1 G/M2
     Route: 065
  2. VORAXAZE [Suspect]
     Active Substance: GLUCARPIDASE
     Indication: TOXICITY TO VARIOUS AGENTS
     Dosage: UNK
     Route: 065

REACTIONS (2)
  - Neutropenia [Unknown]
  - Hepatotoxicity [Unknown]
